FAERS Safety Report 8512673-2 (Version None)
Quarter: 2012Q3

REPORT INFORMATION
  Report Type: 
  Country: None (occurrence: None)
  Receive Date: 20120716
  Receipt Date: 20120704
  Transmission Date: 20120928
  Serious: Yes (Hospitalization)
  Sender: FDA-Public Use
  Company Number: GB-PFIZER INC-2012099419

PATIENT
  Age: 46 Year
  Sex: Male
  Weight: 89.2 kg

DRUGS (7)
  1. PREGABALIN [Concomitant]
     Indication: PAIN
     Dosage: 150 MG, 3X/DAY
     Route: 048
     Dates: start: 20110901
  2. CRIZOTINIB [Suspect]
     Indication: NON-SMALL CELL LUNG CANCER
     Dosage: 250 MG, 2X/DAY
     Route: 048
     Dates: start: 20120305, end: 20120420
  3. DEXAMETHASONE [Concomitant]
     Indication: SUPERIOR VENA CAVA SYNDROME
     Dosage: 6 MG, 1X/DAY
     Route: 048
     Dates: start: 20110701
  4. LATANOPROST [Concomitant]
     Indication: DRY EYE
     Dosage: 1 DF, 1X/DAY AT NIGHT
     Route: 047
     Dates: start: 20120308
  5. ENOXAPARIN SODIUM [Concomitant]
     Indication: VENA CAVA THROMBOSIS
     Dosage: UNK
     Route: 058
     Dates: start: 20110701
  6. NYSTATIN [Concomitant]
     Indication: ORAL CANDIDIASIS
     Dosage: UNK, 4X/DAY
     Dates: start: 20120411
  7. LANSOPRAZOLE [Concomitant]
     Indication: PROPHYLAXIS
     Dosage: 30 MG, 1X/DAY
     Route: 048
     Dates: start: 20110701

REACTIONS (1)
  - LOWER RESPIRATORY TRACT INFECTION [None]
